FAERS Safety Report 21163566 (Version 7)
Quarter: 2022Q4

REPORT INFORMATION
  Report Type: Spontaneous
  Country: CA (occurrence: CA)
  Receive Date: 20220802
  Receipt Date: 20221114
  Transmission Date: 20230112
  Serious: Yes (Other)
  Sender: FDA-Public Use
  Company Number: CA-CELLTRION INC.-2022CA012294

PATIENT

DRUGS (8)
  1. INFLECTRA [Suspect]
     Active Substance: INFLIXIMAB-DYYB
     Indication: Colitis ulcerative
     Dosage: 10 MG/KG, WEEKS 0, 2, 6, THEN Q8 WEEKS, WEEK 0 AT HOSPITAL
     Route: 042
     Dates: start: 20220708, end: 20220818
  2. INFLECTRA [Suspect]
     Active Substance: INFLIXIMAB-DYYB
     Dosage: 10 MG/KG, WEEKS 0, 2, 6, THEN Q8 WEEKS, WEEK 0 AT HOSPITAL
     Route: 042
     Dates: start: 20220722
  3. INFLECTRA [Suspect]
     Active Substance: INFLIXIMAB-DYYB
     Dosage: 10 MG/KG, WEEKS 0, 2, 6, THEN Q8 WEEKS, WEEK 0 AT HOSPITAL
     Route: 042
     Dates: start: 20220818
  4. INFLECTRA [Suspect]
     Active Substance: INFLIXIMAB-DYYB
     Dosage: 10 MG/KG, EVERY 4 WEEK, WEEKS 0, 2, 6, THEN Q8 WEEKS, WEEK 0 AT HOSPITAL
     Route: 042
     Dates: start: 20220913
  5. INFLECTRA [Suspect]
     Active Substance: INFLIXIMAB-DYYB
     Dosage: 10 MG/KG, EVERY 4 WEEK (850 MG)
     Route: 042
     Dates: start: 20221013
  6. CALCIUM [Concomitant]
     Active Substance: CALCIUM
     Dosage: 1 DF, DOSAGE INFORMATION NOT AVAILABLE
     Route: 065
  7. PREDNISONE [Concomitant]
     Active Substance: PREDNISONE
     Dosage: 20 MG, 1X/DAY, WEANING DOSE - START DOSE UNKNOWN
     Route: 065
     Dates: start: 202205
  8. PREDNISONE [Concomitant]
     Active Substance: PREDNISONE
     Dosage: 7.5 MG, 1X/DAY (WEANED FROM PREDNISONE AT 7.5 MG A DAY)

REACTIONS (16)
  - Condition aggravated [Not Recovered/Not Resolved]
  - Haematochezia [Not Recovered/Not Resolved]
  - Perforation [Unknown]
  - Off label use [Unknown]
  - Off label use [Unknown]
  - Rash macular [Unknown]
  - Subcutaneous abscess [Unknown]
  - Fatigue [Not Recovered/Not Resolved]
  - Frequent bowel movements [Not Recovered/Not Resolved]
  - Bowel movement irregularity [Unknown]
  - Abdominal distension [Unknown]
  - Abdominal pain [Unknown]
  - Body temperature increased [Recovered/Resolved]
  - Chills [Recovered/Resolved]
  - Blood pressure fluctuation [Unknown]
  - Heart rate irregular [Unknown]

NARRATIVE: CASE EVENT DATE: 20220101
